FAERS Safety Report 5176642-5 (Version None)
Quarter: 2006Q4

REPORT INFORMATION
  Report Type: 
  Country: None (occurrence: None)
  Receive Date: 20061215
  Receipt Date: 20061207
  Transmission Date: 20070319
  Serious: Yes (Hospitalization)
  Sender: FDA-Public Use
  Company Number: FR-ABBOTT-06P-056-0352738-00

PATIENT
  Age: 63 Year
  Sex: Female

DRUGS (4)
  1. DEPAKOTE [Suspect]
     Indication: DYSTHYMIC DISORDER
     Route: 048
     Dates: start: 20060101, end: 20061129
  2. DEPAKOTE [Suspect]
     Route: 048
     Dates: start: 20061130
  3. LITHIUM CARBONATE [Interacting]
     Indication: DYSTHYMIC DISORDER
     Route: 048
     Dates: start: 20060801
  4. OLANZAPINE [Concomitant]
     Indication: DRUG USE FOR UNKNOWN INDICATION
     Route: 048

REACTIONS (6)
  - CONFUSIONAL STATE [None]
  - DEPRESSION [None]
  - DISORIENTATION [None]
  - MANIA [None]
  - MEMORY IMPAIRMENT [None]
  - PYELONEPHRITIS [None]
